FAERS Safety Report 9659503 (Version 1)
Quarter: 2013Q4

REPORT INFORMATION
  Report Type: Spontaneous
  Country: US (occurrence: US)
  Receive Date: 20131031
  Receipt Date: 20131031
  Transmission Date: 20140711
  Serious: Yes (Other)
  Sender: FDA-Public Use
  Company Number: US-JNJFOC-20131013788

PATIENT
  Sex: 0

DRUGS (2)
  1. DOXORUBICIN [Suspect]
     Indication: ACUTE LYMPHOCYTIC LEUKAEMIA
     Dosage: 300 MG/M2 TO 360 MG/M2.
     Route: 042
  2. DEXRAZOXANE [Suspect]
     Indication: ACUTE LYMPHOCYTIC LEUKAEMIA
     Route: 065

REACTIONS (3)
  - Troponin T increased [Unknown]
  - N-terminal prohormone brain natriuretic peptide abnormal [Unknown]
  - Off label use [Unknown]
